FAERS Safety Report 17576845 (Version 1)
Quarter: 2020Q1

REPORT INFORMATION
  Report Type: Spontaneous
  Country: US (occurrence: US)
  Receive Date: 20200319
  Receipt Date: 20200319
  Transmission Date: 20200409
  Serious: Yes (Hospitalization)
  Sender: FDA-Public Use
  Company Number: None

PATIENT
  Age: 74 Year
  Sex: Male

DRUGS (2)
  1. ASPIRIN (ASPIRIN 81MG TAB, CHEWABLE) [Suspect]
     Active Substance: ASPIRIN
     Route: 048
     Dates: start: 20200227, end: 20200310
  2. APIXABAN (APIXABAN 5MG TAB) [Suspect]
     Active Substance: APIXABAN
     Indication: ATRIAL FIBRILLATION
     Route: 048
     Dates: start: 20200227, end: 20200310

REACTIONS (9)
  - Rectal haemorrhage [None]
  - Hypotension [None]
  - International normalised ratio increased [None]
  - Liver function test abnormal [None]
  - Coagulopathy [None]
  - Lower gastrointestinal haemorrhage [None]
  - Injury [None]
  - Haematoma muscle [None]
  - Platelet dysfunction [None]

NARRATIVE: CASE EVENT DATE: 20200309
